FAERS Safety Report 15267975 (Version 1)
Quarter: 2018Q3

REPORT INFORMATION
  Report Type: Spontaneous
  Country: US (occurrence: US)
  Receive Date: 20180725
  Receipt Date: 20180725
  Transmission Date: 20181010
  Serious: No
  Sender: FDA-Public Use
  Company Number: None

PATIENT
  Age: 58 Year
  Sex: Female
  Weight: 67.5 kg

DRUGS (3)
  1. ACETAMINOPHEN 325MG [Concomitant]
     Dates: start: 20170814, end: 20180725
  2. DIPHENHYDRAMINE 25MG [Concomitant]
     Active Substance: DIPHENHYDRAMINE
     Dates: start: 20170814, end: 20180725
  3. CUVITRU [Suspect]
     Active Substance: HUMAN IMMUNOGLOBULIN G
     Indication: IMMUNODEFICIENCY COMMON VARIABLE
     Dosage: ?          OTHER FREQUENCY:BIWEEKLY;?
     Route: 058
     Dates: start: 20170814, end: 20180725

REACTIONS (6)
  - Eye pain [None]
  - Headache [None]
  - Nausea [None]
  - Vomiting [None]
  - Musculoskeletal stiffness [None]
  - Infusion related reaction [None]

NARRATIVE: CASE EVENT DATE: 20180725
